FAERS Safety Report 8515873-0 (Version None)
Quarter: 2012Q3

REPORT INFORMATION
  Report Type: 
  Country: None (occurrence: None)
  Receive Date: 20120717
  Receipt Date: 20120706
  Transmission Date: 20120928
  Serious: Yes (Death)
  Sender: FDA-Public Use
  Company Number: BY-CELGENEUS-013-21880-12070522

PATIENT
  Age: 65 Year
  Sex: Male

DRUGS (1)
  1. REVLIMID [Suspect]
     Dosage: 10-25-5
     Route: 048
     Dates: start: 20110101, end: 20120101

REACTIONS (1)
  - DEATH [None]
